FAERS Safety Report 21246711 (Version 1)
Quarter: 2022Q3

REPORT INFORMATION
  Report Type: Report from Study
  Country: CA (occurrence: CA)
  Receive Date: 20220824
  Receipt Date: 20220824
  Transmission Date: 20221027
  Serious: Yes (Other)
  Sender: FDA-Public Use
  Company Number: CA-JNJFOC-20220245174

PATIENT
  Age: 22 Year
  Sex: Female

DRUGS (1)
  1. REMICADE [Suspect]
     Active Substance: INFLIXIMAB
     Indication: Colitis ulcerative
     Dosage: ON 17-FEB-2022 PATIENT ADMINISTERED HER 72ND INFLIXIMAB, RECOMBINANT INFUSION. ON 29-DEC-2021 PATIEN
     Route: 042

REACTIONS (6)
  - Lupus-like syndrome [Unknown]
  - Crohn^s disease [Unknown]
  - Eczema [Not Recovered/Not Resolved]
  - Muscle spasms [Unknown]
  - Frequent bowel movements [Unknown]
  - Off label use [Unknown]

NARRATIVE: CASE EVENT DATE: 20220204
